FAERS Safety Report 18162464 (Version 1)
Quarter: 2020Q3

REPORT INFORMATION
  Report Type: Spontaneous
  Country: US (occurrence: US)
  Receive Date: 20200818
  Receipt Date: 20200818
  Transmission Date: 20201103
  Serious: Yes (Other)
  Sender: FDA-Public Use
  Company Number: US-ASTRAZENECA-2020SF03018

PATIENT
  Age: 68 Year
  Sex: Female

DRUGS (6)
  1. OLAPARIB. [Suspect]
     Active Substance: OLAPARIB
     Indication: PRODUCT USED FOR UNKNOWN INDICATION
     Dosage: UNK
     Route: 048
  2. ZEJULA [Suspect]
     Active Substance: NIRAPARIB
     Indication: OVARIAN CANCER
     Route: 065
  3. ZEJULA [Suspect]
     Active Substance: NIRAPARIB
     Indication: OVARIAN CANCER
     Route: 065
     Dates: end: 20200615
  4. KEYTRUDA [Suspect]
     Active Substance: PEMBROLIZUMAB
     Indication: PRODUCT USED FOR UNKNOWN INDICATION
     Dosage: UNK UNK, Z(EVERY 3 WEEK)
     Route: 065
  5. ZEJULA [Suspect]
     Active Substance: NIRAPARIB
     Indication: OVARIAN CANCER
     Route: 065
     Dates: start: 20200417
  6. ZEJULA [Suspect]
     Active Substance: NIRAPARIB
     Indication: OVARIAN CANCER
     Route: 065
     Dates: start: 20200506

REACTIONS (12)
  - Blood pressure increased [Unknown]
  - Blood creatine increased [Unknown]
  - Renal impairment [Unknown]
  - Underdose [Unknown]
  - Single functional kidney [Unknown]
  - Platelet count decreased [Unknown]
  - Constipation [Unknown]
  - Pruritus [Unknown]
  - Pain [Unknown]
  - Malaise [Unknown]
  - Rash [Unknown]
  - Surgery [Unknown]
